FAERS Safety Report 20097061 (Version 1)
Quarter: 2021Q4

REPORT INFORMATION
  Report Type: Spontaneous
  Country: JP (occurrence: JP)
  Receive Date: 20211122
  Receipt Date: 20211122
  Transmission Date: 20220303
  Serious: Yes (Other)
  Sender: FDA-Public Use
  Company Number: JP-CELGENE-JPN-20211104565

PATIENT
  Age: 59 Year
  Sex: Male
  Weight: 56.9 kg

DRUGS (18)
  1. AZACITIDINE [Suspect]
     Active Substance: AZACITIDINE
     Indication: Myelodysplastic syndrome
     Route: 065
  2. VENETOCLAX [Suspect]
     Active Substance: VENETOCLAX
     Indication: Myelodysplastic syndrome
     Route: 065
  3. ZINC [Concomitant]
     Active Substance: ZINC
     Indication: Zinc deficiency
     Dosage: 100 MILLIGRAM
     Route: 048
     Dates: start: 20210819, end: 20210930
  4. ALANINE [Concomitant]
     Active Substance: ALANINE
     Indication: Vitamin B1 deficiency
     Dosage: 100 MILLIGRAM
     Route: 048
     Dates: start: 20210819, end: 20210930
  5. LIDOCAINE [Concomitant]
     Active Substance: LIDOCAINE
     Indication: Local anaesthesia
     Dosage: 2 MILLILITER
     Route: 041
     Dates: start: 20210913, end: 20210913
  6. LIDOCAINE [Concomitant]
     Active Substance: LIDOCAINE
     Indication: Bone marrow failure
     Dosage: 4 MILLILITER
     Route: 041
     Dates: start: 20211021, end: 20211021
  7. PHENYLEPHRINE HYDROCHLORIDE\TROPICAMIDE [Concomitant]
     Active Substance: PHENYLEPHRINE HYDROCHLORIDE\TROPICAMIDE
     Indication: Slit-lamp examination
     Dosage: 1 DROPS
     Route: 047
     Dates: start: 20210928, end: 20210928
  8. GRANISETRON [Concomitant]
     Active Substance: GRANISETRON
     Indication: Prophylaxis
     Dosage: 1 MILLIGRAM
     Route: 041
     Dates: start: 20210928, end: 20211002
  9. GRANISETRON [Concomitant]
     Active Substance: GRANISETRON
     Indication: Vomiting
     Dosage: 1 MILLIGRAM
     Route: 041
     Dates: start: 20211005, end: 20211006
  10. CARVEDILOL [Concomitant]
     Active Substance: CARVEDILOL
     Indication: Prophylaxis
     Dosage: 2.5 MILLIGRAM
     Route: 048
     Dates: start: 20210930, end: 20211006
  11. CARVEDILOL [Concomitant]
     Active Substance: CARVEDILOL
     Indication: Aneurysm
     Dosage: 5 MILLIGRAM
     Route: 048
     Dates: start: 20211007
  12. SENNOSIDES [Concomitant]
     Active Substance: SENNOSIDES
     Indication: Constipation
     Dosage: 24 MILLIGRAM
     Route: 048
     Dates: start: 20211005
  13. MAGNESIUM OXIDE [Concomitant]
     Active Substance: MAGNESIUM OXIDE
     Indication: Constipation
     Dosage: 330 MILLIGRAM
     Route: 048
     Dates: start: 20211006
  14. FLUCONAZOLE [Concomitant]
     Active Substance: FLUCONAZOLE
     Indication: Infection prophylaxis
     Route: 048
     Dates: start: 20211014
  15. FAROPENEM SODIUM [Concomitant]
     Active Substance: FAROPENEM SODIUM
     Indication: Febrile neutropenia
     Dosage: 600 MILLIGRAM
     Route: 048
     Dates: start: 20211028
  16. GENTAMICIN [Concomitant]
     Active Substance: GENTAMICIN
     Indication: Folliculitis
     Route: 061
     Dates: start: 20211101
  17. KYTRIL [Concomitant]
     Active Substance: GRANISETRON HYDROCHLORIDE
     Indication: Prophylaxis
     Dosage: 2 MILLIGRAM
     Route: 048
     Dates: start: 20211101, end: 20211102
  18. KYTRIL [Concomitant]
     Active Substance: GRANISETRON HYDROCHLORIDE
     Indication: Vomiting

REACTIONS (1)
  - Epistaxis [Not Recovered/Not Resolved]

NARRATIVE: CASE EVENT DATE: 20211103
